FAERS Safety Report 8934287 (Version 1)
Quarter: 2012Q4

REPORT INFORMATION
  Report Type: 
  Country: AU (occurrence: AU)
  Receive Date: 20121129
  Receipt Date: 20121129
  Transmission Date: 20130627
  Serious: Yes (Hospitalization, Other)
  Sender: FDA-Public Use
  Company Number: PHHY2012AU106960

PATIENT
  Age: 69 Year
  Sex: Male
  Weight: 74.4 kg

DRUGS (12)
  1. ZOMETA [Suspect]
     Indication: PROSTATE CANCER
     Dosage: 4 mg (monthly), UNK
     Route: 042
     Dates: start: 20090907
  2. PREDNISOLONE [Suspect]
     Dosage: 5 mg, BID
     Route: 048
     Dates: start: 20120811, end: 20121022
  3. INVESTIGATIONAL DRUG [Suspect]
     Dosage: 400 mg, BID
     Route: 048
     Dates: start: 20120811, end: 20121022
  4. LUCRIN [Concomitant]
     Dates: start: 20100901
  5. METHADONE [Concomitant]
     Dates: start: 20110831
  6. FENTANYL [Concomitant]
     Dates: start: 20110609
  7. BISACODYL [Concomitant]
     Dates: start: 20110203
  8. PANAMAX [Concomitant]
     Dates: start: 20110831
  9. PREGABALIN [Concomitant]
     Dates: start: 20111124
  10. SOMAC [Concomitant]
     Dates: start: 20090319
  11. CYMBALTA [Concomitant]
     Dates: start: 20101124
  12. CARTIA [Concomitant]
     Dates: start: 2006

REACTIONS (4)
  - Osteonecrosis of jaw [Recovered/Resolved]
  - Pain in jaw [Unknown]
  - Osteomyelitis [Unknown]
  - Bone pain [Recovered/Resolved with Sequelae]
